FAERS Safety Report 5521520-2 (Version None)
Quarter: 2007Q4

REPORT INFORMATION
  Report Type: 
  Country: None (occurrence: None)
  Receive Date: 20071116
  Receipt Date: 20071116
  Transmission Date: 20080405
  Serious: No
  Sender: FDA-Public Use
  Company Number: None

PATIENT
  Age: 78 Year
  Sex: Male

DRUGS (1)
  1. CEFEPIME [Suspect]
     Dosage: 2 GM OTHER IV
     Route: 042
     Dates: start: 20070831, end: 20070917

REACTIONS (1)
  - RASH [None]
